FAERS Safety Report 7469081-5 (Version None)
Quarter: 2011Q2

REPORT INFORMATION
  Report Type: 
  Country: None (occurrence: None)
  Receive Date: 20110429
  Receipt Date: 20110321
  Transmission Date: 20111010
  Serious: Yes (Other)
  Sender: FDA-Public Use
  Company Number: 765492

PATIENT
  Age: 22 Month
  Sex: Female
  Weight: 8.6183 kg

DRUGS (2)
  1. PERMETHRIN [Suspect]
     Indication: LICE INFESTATION
     Dosage: 2 OZ. HEAD APPLICATION
     Dates: start: 20110221, end: 20110221
  2. PERMETHRIN [Suspect]
     Indication: PROPHYLAXIS
     Dosage: 2 OZ. HEAD APPLICATION
     Dates: start: 20110221, end: 20110221

REACTIONS (5)
  - COMMUNICATION DISORDER [None]
  - SPEECH DISORDER [None]
  - AGGRESSION [None]
  - CONDITION AGGRAVATED [None]
  - ABNORMAL BEHAVIOUR [None]
